FAERS Safety Report 5372266-5 (Version None)
Quarter: 2007Q2

REPORT INFORMATION
  Report Type: 
  Country: None (occurrence: None)
  Receive Date: 20070627
  Receipt Date: 20070620
  Transmission Date: 20071010
  Serious: Yes (Death, Hospitalization)
  Sender: FDA-Public Use
  Company Number: HQWYE709420JUN07

PATIENT
  Age: 68 Year
  Sex: Male

DRUGS (9)
  1. CORDARONE [Suspect]
     Indication: ATRIAL FIBRILLATION
     Dosage: 300 MG
     Route: 042
     Dates: start: 20070409, end: 20070409
  2. CORDARONE [Suspect]
     Dosage: 3 VIALS
     Route: 042
     Dates: start: 20070414, end: 20070414
  3. CORDARONE [Suspect]
     Dosage: 6 VIALS
     Route: 042
     Dates: start: 20070415, end: 20070415
  4. CORDARONE [Suspect]
     Dosage: 1 VIAL
     Route: 042
     Dates: start: 20070416, end: 20070418
  5. CORDARONE [Suspect]
     Dosage: NOT PROVIDED
     Route: 065
     Dates: start: 20070410, end: 20070413
  6. TAZOCILLINE [Concomitant]
     Dosage: 4 G/FREQUENCY NOT PROVIDED
     Route: 042
     Dates: start: 20070409, end: 20070410
  7. TAZOCILLINE [Concomitant]
     Dosage: NOT PROVIDED
     Route: 042
     Dates: start: 20070413, end: 20070416
  8. AMIKACIN [Concomitant]
     Dosage: NOT PROVIDED
     Route: 042
     Dates: start: 20070409, end: 20070409
  9. TENORMIN [Suspect]
     Indication: ATRIAL FIBRILLATION
     Dosage: 2 MG ONCE
     Route: 042
     Dates: start: 20070409, end: 20070409

REACTIONS (4)
  - ALVEOLITIS ALLERGIC [None]
  - DRUG INEFFECTIVE [None]
  - INTERSTITIAL LUNG DISEASE [None]
  - MULTI-ORGAN FAILURE [None]
